FAERS Safety Report 25224075 (Version 1)
Quarter: 2025Q2

REPORT INFORMATION
  Report Type: Report from Study
  Country: KR (occurrence: KR)
  Receive Date: 20250422
  Receipt Date: 20250422
  Transmission Date: 20250717
  Serious: Yes (Hospitalization, Other)
  Sender: TAKEDA
  Company Number: KR-TAKEDA-2025TUS038353

PATIENT
  Age: 43 Year
  Sex: Male
  Weight: 68 kg

DRUGS (10)
  1. VEDOLIZUMAB [Suspect]
     Active Substance: VEDOLIZUMAB
     Indication: Crohn^s disease
  2. AZATHIOPRINE [Concomitant]
     Active Substance: AZATHIOPRINE
     Dosage: 100 MILLIGRAM, QD
     Dates: start: 20220420, end: 20240701
  3. CEFTRIAXONE SODIUM [Concomitant]
     Active Substance: CEFTRIAXONE SODIUM
     Dosage: UNK UNK, QD
     Dates: start: 20240505, end: 20240505
  4. Acetphen premix [Concomitant]
     Dates: start: 20240505, end: 20240510
  5. METRONIDAZOLE [Concomitant]
     Active Substance: METRONIDAZOLE
     Dosage: 500 MILLIGRAM, TID
     Dates: start: 20240505, end: 20240513
  6. Ckd cefazolin [Concomitant]
     Dosage: UNK UNK, TID
     Dates: start: 20240506, end: 20240513
  7. PROPACETAMOL HYDROCHLORIDE [Concomitant]
     Active Substance: PROPACETAMOL HYDROCHLORIDE
     Dates: start: 20240507, end: 20240509
  8. Venoferrum [Concomitant]
     Dosage: 100 MILLIGRAM, QD
     Dates: start: 20240512, end: 20240512
  9. Mesexin [Concomitant]
     Dosage: 1000 MILLIGRAM, TID
     Dates: start: 20240513, end: 20240520
  10. Citopcin [Concomitant]
     Dosage: 500 MILLIGRAM, BID
     Dates: start: 20240827

REACTIONS (1)
  - Anal abscess [Recovered/Resolved]

NARRATIVE: CASE EVENT DATE: 20240501
